FAERS Safety Report 11713202 (Version 2)
Quarter: 2016Q2

REPORT INFORMATION
  Report Type: Report from Study
  Country: US (occurrence: US)
  Receive Date: 20151109
  Receipt Date: 20160428
  Transmission Date: 20160815
  Serious: Yes (Hospitalization)
  Sender: FDA-Public Use
  Company Number: US-AMGEN-USASL2015117188

PATIENT
  Age: 65 Year
  Sex: Female

DRUGS (1)
  1. ENBREL [Suspect]
     Active Substance: ETANERCEPT
     Indication: RHEUMATOID ARTHRITIS
     Dosage: UNK
     Route: 065
     Dates: start: 20101002

REACTIONS (8)
  - Pain in extremity [Unknown]
  - Cardiac disorder [Unknown]
  - Feeling abnormal [Unknown]
  - Depression [Unknown]
  - Joint swelling [Unknown]
  - Muscular weakness [Unknown]
  - Arthralgia [Unknown]
  - Grip strength decreased [Unknown]

NARRATIVE: CASE EVENT DATE: 2016
